FAERS Safety Report 14569265 (Version 1)
Quarter: 2018Q1

REPORT INFORMATION
  Report Type: Spontaneous
  Country: FR (occurrence: FR)
  Receive Date: 20180223
  Receipt Date: 20180223
  Transmission Date: 20180509
  Serious: Yes (Hospitalization)
  Sender: FDA-Public Use
  Company Number: FR-BAUSCH-BL-2018-005091

PATIENT
  Age: 80 Year
  Sex: Female
  Weight: 52 kg

DRUGS (3)
  1. OFLOXACINE [Suspect]
     Active Substance: OFLOXACIN
     Indication: PYELONEPHRITIS
     Route: 048
     Dates: start: 20180106, end: 20180111
  2. BACTRIM [Suspect]
     Active Substance: SULFAMETHOXAZOLE\TRIMETHOPRIM
     Indication: PYELONEPHRITIS
     Dosage: COMPRESSED
     Route: 048
     Dates: start: 20180111, end: 20180126
  3. SPIRIVA [Concomitant]
     Active Substance: TIOTROPIUM BROMIDE MONOHYDRATE
     Indication: PRODUCT USED FOR UNKNOWN INDICATION
     Dosage: POWDER FOR INHALATION IN CAPSULE
     Route: 055

REACTIONS (1)
  - Acute motor-sensory axonal neuropathy [Not Recovered/Not Resolved]

NARRATIVE: CASE EVENT DATE: 20180203
